FAERS Safety Report 9855328 (Version 1)
Quarter: 2014Q1

REPORT INFORMATION
  Report Type: Report from Study
  Country: LB (occurrence: LB)
  Receive Date: 20140130
  Receipt Date: 20140130
  Transmission Date: 20141002
  Serious: Yes (Hospitalization)
  Sender: FDA-Public Use
  Company Number: LB-SA-2014SA009301

PATIENT
  Age: 52 Year
  Sex: Male

DRUGS (11)
  1. LANTUS SOLOSTAR [Suspect]
     Indication: DIABETES MELLITUS
     Route: 058
     Dates: start: 2013
  2. SOLOSTAR [Concomitant]
     Indication: DEVICE THERAPY
     Route: 058
     Dates: start: 2013
  3. GLUCOPHAGE [Concomitant]
     Indication: DIABETES MELLITUS
     Route: 048
  4. COAPROVEL [Concomitant]
     Route: 048
  5. PRAXILENE [Concomitant]
     Route: 048
  6. PLAVIX [Concomitant]
     Route: 048
  7. BISOPROLOL [Concomitant]
     Route: 048
  8. ALLOPURINOL [Concomitant]
     Route: 048
  9. ADALAT [Concomitant]
     Route: 048
  10. ASPICOT [Concomitant]
     Route: 048
  11. EUTHYROX [Concomitant]
     Route: 048

REACTIONS (5)
  - Myocardial infarction [Recovered/Resolved]
  - Dyspnoea [Recovered/Resolved]
  - Nausea [Recovered/Resolved]
  - Cyanosis [Recovered/Resolved]
  - Hypertension [Recovered/Resolved]
